FAERS Safety Report 14393096 (Version 1)
Quarter: 2018Q1

REPORT INFORMATION
  Report Type: Spontaneous
  Country: US (occurrence: US)
  Receive Date: 20180116
  Receipt Date: 20180116
  Transmission Date: 20180509
  Serious: No
  Sender: FDA-Public Use
  Company Number: US-NOVOPROD-574859

PATIENT
  Age: 64 Year
  Sex: Female

DRUGS (4)
  1. TRESIBA [Suspect]
     Active Substance: INSULIN DEGLUDEC
     Indication: TYPE 1 DIABETES MELLITUS
     Dosage: 23 U, UNK
     Route: 058
     Dates: start: 201706
  2. NOVOLOG [Suspect]
     Active Substance: INSULIN ASPART
     Dosage: 23 U ONCE
     Route: 058
     Dates: start: 2017
  3. NOVOLOG [Suspect]
     Active Substance: INSULIN ASPART
     Dosage: 23 U ONCE
     Route: 058
     Dates: start: 20171122
  4. NOVOLOG [Suspect]
     Active Substance: INSULIN ASPART
     Indication: TYPE 1 DIABETES MELLITUS
     Dosage: 5 U, UNK
     Route: 058

REACTIONS (3)
  - Incorrect dose administered [Not Recovered/Not Resolved]
  - Product appearance confusion [Unknown]
  - Incorrect dose administered [Unknown]

NARRATIVE: CASE EVENT DATE: 2017
